FAERS Safety Report 8990735 (Version 1)
Quarter: 2012Q4

REPORT INFORMATION
  Report Type: Report from Study
  Country: FR (occurrence: FR)
  Receive Date: 20121228
  Receipt Date: 20121228
  Transmission Date: 20130627
  Serious: Yes (Hospitalization)
  Sender: FDA-Public Use
  Company Number: FR-ROCHE-1174843

PATIENT
  Age: 41 Year

DRUGS (1)
  1. NUTROPIN AQ [Suspect]
     Indication: GROWTH HORMONE DEFICIENCY
     Dosage: 10 mg/ 2 ml
     Route: 065
     Dates: start: 20070724, end: 2008

REACTIONS (1)
  - Sleep apnoea syndrome [Unknown]
